FAERS Safety Report 5385207-1 (Version None)
Quarter: 2007Q3

REPORT INFORMATION
  Report Type: 
  Country: None (occurrence: None)
  Receive Date: 20070706
  Receipt Date: 20070706
  Transmission Date: 20080115
  Serious: Yes (Other)
  Sender: FDA-Public Use
  Company Number: None

PATIENT
  Age: 42 Year
  Sex: Female
  Weight: 67.586 kg

DRUGS (1)
  1. PROMETRIUM [Suspect]
     Indication: IN VITRO FERTILISATION
     Dosage: 200 MG 3 X A DAY PO
     Route: 048
     Dates: start: 20070615, end: 20070709

REACTIONS (4)
  - ASTHENIA [None]
  - DIZZINESS [None]
  - HYPOTONIA [None]
  - SOMNOLENCE [None]
